FAERS Safety Report 9604582 (Version 1)
Quarter: 2013Q4

REPORT INFORMATION
  Report Type: Spontaneous
  Country: BR (occurrence: BR)
  Receive Date: 20131008
  Receipt Date: 20131008
  Transmission Date: 20140711
  Serious: Yes (Hospitalization)
  Sender: FDA-Public Use
  Company Number: BR-ASTRAZENECA-2013SE72850

PATIENT
  Age: 542 Month
  Sex: Male
  Weight: 94 kg

DRUGS (4)
  1. SELOZOK [Suspect]
     Dosage: BID
     Route: 048
     Dates: start: 201302
  2. BRILINTA [Suspect]
     Dosage: BID
     Route: 048
     Dates: start: 201302
  3. GALVUS [Concomitant]
     Dates: start: 2008
  4. SOMALGIN CARDIO [Concomitant]
     Dates: start: 2008

REACTIONS (2)
  - Coronary artery occlusion [Recovering/Resolving]
  - Off label use [Not Recovered/Not Resolved]
